FAERS Safety Report 6929260-X (Version None)
Quarter: 2010Q3

REPORT INFORMATION
  Report Type: 
  Country: None (occurrence: None)
  Receive Date: 20100812
  Receipt Date: 20100729
  Transmission Date: 20110219
  Serious: No
  Sender: FDA-Public Use
  Company Number: SPI201000199

PATIENT
  Age: 56 Year
  Sex: Female
  Weight: 69.4 kg

DRUGS (6)
  1. AMITIZA [Suspect]
     Indication: CONSTIPATION
     Dosage: 24 MCC, BID, ORAL 24 MCG, QD, ORAL
     Route: 048
     Dates: start: 20100701, end: 20100718
  2. AMITIZA [Suspect]
     Indication: CONSTIPATION
     Dosage: 24 MCC, BID, ORAL 24 MCG, QD, ORAL
     Route: 048
     Dates: start: 20100722
  3. PREMARIN (ESTROGENS CONJUGATED, MEDROGESTONE) [Concomitant]
  4. LIPITOR [Concomitant]
  5. ALIGN [Concomitant]
  6. MIRALAX [Concomitant]

REACTIONS (2)
  - DYSPNOEA [None]
  - OEDEMA PERIPHERAL [None]
